FAERS Safety Report 7779734-7 (Version None)
Quarter: 2011Q3

REPORT INFORMATION
  Report Type: 
  Country: None (occurrence: None)
  Receive Date: 20110927
  Receipt Date: 20110913
  Transmission Date: 20111222
  Serious: Yes (Hospitalization)
  Sender: FDA-Public Use
  Company Number: KR-JNJFOC-20110907003

PATIENT
  Age: 26 Year
  Sex: Female

DRUGS (3)
  1. ACETAMINOPHEN [Suspect]
     Indication: NASOPHARYNGITIS
  2. ACETAMINOPHEN [Suspect]
  3. CEPHRADINE [Suspect]
     Indication: NASOPHARYNGITIS

REACTIONS (3)
  - STEVENS-JOHNSON SYNDROME [None]
  - HEPATIC CIRRHOSIS [None]
  - HEPATITIS CHOLESTATIC [None]
